FAERS Safety Report 10739170 (Version 1)
Quarter: 2015Q1

REPORT INFORMATION
  Report Type: Spontaneous
  Country: US (occurrence: US)
  Receive Date: 20150126
  Receipt Date: 20150126
  Transmission Date: 20150721
  Serious: No
  Sender: FDA-Public Use
  Company Number: US-NOVEN-14US010834

PATIENT
  Sex: Female

DRUGS (2)
  1. BRISDELLE [Suspect]
     Active Substance: PAROXETINE MESYLATE
     Indication: HOT FLUSH
     Dosage: 2 X 7.5MG
     Route: 048
     Dates: start: 201410
  2. BRISDELLE [Suspect]
     Active Substance: PAROXETINE MESYLATE
     Dosage: 7.5 MG, UNK
     Dates: start: 201410

REACTIONS (2)
  - Intentional product use issue [Unknown]
  - Mania [Unknown]
